FAERS Safety Report 5844392-5 (Version None)
Quarter: 2008Q3

REPORT INFORMATION
  Report Type: 
  Country: None (occurrence: None)
  Receive Date: 20080813
  Receipt Date: 20080730
  Transmission Date: 20090109
  Serious: Yes (Hospitalization)
  Sender: FDA-Public Use
  Company Number: DE-MERCK-99055503

PATIENT
  Age: 58 Year
  Sex: Male
  Weight: 70 kg

DRUGS (4)
  1. PROPECIA [Suspect]
     Indication: ALOPECIA
     Route: 048
     Dates: start: 19990301, end: 19990401
  2. PROPECIA [Suspect]
     Route: 048
     Dates: start: 19990107, end: 19990101
  3. PROPECIA [Suspect]
     Route: 048
     Dates: start: 19990401
  4. PROPECIA [Suspect]
     Route: 048

REACTIONS (8)
  - ARTHRALGIA [None]
  - BACK PAIN [None]
  - LIBIDO DECREASED [None]
  - LIP SWELLING [None]
  - LIP ULCERATION [None]
  - MENINGIOMA [None]
  - MUSCULOSKELETAL DISCOMFORT [None]
  - WRONG TECHNIQUE IN DRUG USAGE PROCESS [None]
